FAERS Safety Report 4785872-3 (Version None)
Quarter: 2005Q3

REPORT INFORMATION
  Report Type: 
  Country: None (occurrence: None)
  Receive Date: 20050930
  Receipt Date: 20050119
  Transmission Date: 20060218
  Serious: No
  Sender: FDA-Public Use
  Company Number: 2005FR-00304

PATIENT
  Age: 29 Year
  Sex: Female

DRUGS (1)
  1. FLUOXETINE [Suspect]
     Indication: DEPRESSION
     Dosage: 20 MG ORAL
     Route: 048
     Dates: start: 20041101, end: 20041227

REACTIONS (4)
  - DISSOCIATION [None]
  - FEELING ABNORMAL [None]
  - HYPOAESTHESIA [None]
  - SUICIDAL IDEATION [None]
